FAERS Safety Report 4788399-8 (Version None)
Quarter: 2005Q4

REPORT INFORMATION
  Report Type: 
  Country: None (occurrence: None)
  Receive Date: 20051005
  Receipt Date: 20050928
  Transmission Date: 20060501
  Serious: Yes (Death, Hospitalization)
  Sender: FDA-Public Use
  Company Number: 200513208FR

PATIENT
  Sex: Female

DRUGS (1)
  1. TAXOTERE [Suspect]
     Route: 042

REACTIONS (3)
  - DEATH [None]
  - HAEMOLYSIS [None]
  - ONYCHOLYSIS [None]
